FAERS Safety Report 10955150 (Version 1)
Quarter: 2015Q1

REPORT INFORMATION
  Report Type: Spontaneous
  Country: GB (occurrence: GB)
  Receive Date: 20150326
  Receipt Date: 20150326
  Transmission Date: 20150721
  Serious: Yes (Hospitalization)
  Sender: FDA-Public Use
  Company Number: PHHY2015GB031319

PATIENT
  Age: 32 Year
  Sex: Female

DRUGS (4)
  1. VICTOZA [Suspect]
     Active Substance: LIRAGLUTIDE
     Indication: PRODUCT USED FOR UNKNOWN INDICATION
     Dosage: 1.2 MG, QD
     Route: 065
  2. METFORMIN [Suspect]
     Active Substance: METFORMIN HYDROCHLORIDE
     Indication: BLOOD GLUCOSE INCREASED
     Route: 065
  3. NOVOLOG [Suspect]
     Active Substance: INSULIN ASPART
     Indication: PRODUCT USED FOR UNKNOWN INDICATION
     Dosage: 18 UNITS AT EACH MEAL + SLIDING SCALE DOSE:18 UNIT(S)
     Route: 065
  4. LANTUS [Suspect]
     Active Substance: INSULIN GLARGINE
     Indication: BLOOD GLUCOSE INCREASED
     Dosage: UNK DOSE:55 UNIT(S)
     Route: 065

REACTIONS (3)
  - Constipation [Unknown]
  - Injection site pain [Unknown]
  - Diabetic ketoacidosis [Unknown]
